FAERS Safety Report 4754189-5 (Version None)
Quarter: 2005Q3

REPORT INFORMATION
  Report Type: 
  Country: None (occurrence: None)
  Receive Date: 20050825
  Receipt Date: 20041026
  Transmission Date: 20060218
  Serious: Yes (Life-Threatening, Hospitalization)
  Sender: FDA-Public Use
  Company Number: FLX20040005

PATIENT
  Age: 29 Year
  Sex: Male

DRUGS (4)
  1. FLUOXETINE HCL [Suspect]
     Dosage: 180 TABS ONCE PO
     Route: 048
     Dates: start: 20040101, end: 20040101
  2. ZIPRASIDONE HCL [Suspect]
     Dosage: 74 TABS ONCE PO
     Route: 048
     Dates: start: 20040101, end: 20040101
  3. DIVALPROEX SODIUM [Suspect]
     Dosage: 300 TABS ONCE PO
     Route: 048
     Dates: start: 20040101, end: 20040101
  4. BUPROPION HCL [Suspect]
     Dosage: 157 TABS ONCE PO
     Route: 048
     Dates: start: 20040101, end: 20040101

REACTIONS (5)
  - DELIRIUM [None]
  - ELECTROCARDIOGRAM QT CORRECTED INTERVAL PROLONGED [None]
  - GRAND MAL CONVULSION [None]
  - LETHARGY [None]
  - MULTIPLE DRUG OVERDOSE [None]
